FAERS Safety Report 20853712 (Version 1)
Quarter: 2022Q2

REPORT INFORMATION
  Report Type: Spontaneous
  Country: US (occurrence: None)
  Receive Date: 20220518
  Receipt Date: 20220518
  Transmission Date: 20220721
  Serious: Yes (Hospitalization)
  Sender: FDA-Public Use
  Company Number: None

PATIENT
  Age: 78 Year
  Sex: Female

DRUGS (1)
  1. TREMFYA [Suspect]
     Active Substance: GUSELKUMAB
     Indication: Product used for unknown indication
     Dosage: OTHER FREQUENCY : Q8W;?
     Route: 058
     Dates: start: 20181228

REACTIONS (1)
  - Cardiac pacemaker replacement [None]

NARRATIVE: CASE EVENT DATE: 20220516
